FAERS Safety Report 6927410-2 (Version None)
Quarter: 2010Q3

REPORT INFORMATION
  Report Type: 
  Country: None (occurrence: None)
  Receive Date: 20100817
  Receipt Date: 20100812
  Transmission Date: 20110219
  Serious: Yes (Hospitalization, Other)
  Sender: FDA-Public Use
  Company Number: US-ASTRAZENECA-2007UW05648

PATIENT
  Age: 586 Month
  Sex: Female
  Weight: 100.7 kg

DRUGS (60)
  1. SEROQUEL [Suspect]
     Indication: DEPRESSION
     Route: 048
     Dates: start: 20000801
  2. SEROQUEL [Suspect]
     Indication: PSYCHOTIC DISORDER
     Route: 048
     Dates: start: 20000801
  3. SEROQUEL [Suspect]
     Route: 048
     Dates: start: 20000920
  4. SEROQUEL [Suspect]
     Route: 048
     Dates: start: 20000920
  5. SEROQUEL [Suspect]
     Route: 048
     Dates: start: 20010108
  6. SEROQUEL [Suspect]
     Route: 048
     Dates: start: 20010108
  7. SEROQUEL [Suspect]
     Route: 048
     Dates: start: 20020218
  8. SEROQUEL [Suspect]
     Route: 048
     Dates: start: 20020218
  9. SEROQUEL [Suspect]
     Dosage: 50 MG TWO TIMES A DAY AND 150 MG AT NIGHT
     Route: 048
     Dates: start: 20030331
  10. SEROQUEL [Suspect]
     Dosage: 50 MG TWO TIMES A DAY AND 150 MG AT NIGHT
     Route: 048
     Dates: start: 20030331
  11. SEROQUEL [Suspect]
     Route: 048
     Dates: start: 20040723
  12. SEROQUEL [Suspect]
     Route: 048
     Dates: start: 20040723
  13. SEROQUEL [Suspect]
     Dosage: 125 MG 5 TABLETS AT NIGHT
     Route: 048
     Dates: start: 20040724
  14. SEROQUEL [Suspect]
     Dosage: 125 MG 5 TABLETS AT NIGHT
     Route: 048
     Dates: start: 20040724
  15. SEROQUEL [Suspect]
     Route: 048
     Dates: start: 20050914
  16. SEROQUEL [Suspect]
     Route: 048
     Dates: start: 20050914
  17. SEROQUEL [Suspect]
     Route: 048
     Dates: start: 20060420
  18. SEROQUEL [Suspect]
     Route: 048
     Dates: start: 20060420
  19. SEROQUEL [Suspect]
     Route: 048
     Dates: start: 20060610
  20. SEROQUEL [Suspect]
     Route: 048
     Dates: start: 20060610
  21. SEROQUEL [Suspect]
     Route: 048
     Dates: start: 20070813
  22. SEROQUEL [Suspect]
     Route: 048
     Dates: start: 20070813
  23. HYDROCODONE BITARTRATE [Concomitant]
     Dosage: 5/500 TABLET DISPENSED
     Dates: start: 20000921
  24. CLONAZEPAM [Concomitant]
     Route: 048
     Dates: start: 20001112
  25. SALSALATE [Concomitant]
     Route: 048
     Dates: start: 20001218
  26. PREVACID [Concomitant]
     Route: 048
     Dates: start: 20010111
  27. EFFEXOR XR [Concomitant]
     Dosage: 75 MG - 300 MG
     Route: 048
     Dates: start: 20010129
  28. ZAROXOLYN [Concomitant]
     Dosage: 2.5 MG - 5 MG
     Route: 048
     Dates: start: 20010302
  29. FUROSEMIDE [Concomitant]
     Route: 048
     Dates: start: 20010302
  30. IBUPROFEN [Concomitant]
     Route: 048
     Dates: start: 20010407
  31. SPIRONOLACTONE [Concomitant]
     Dosage: 25 MG - 100 MG
     Route: 048
     Dates: start: 20010606
  32. PROTONIX [Concomitant]
     Indication: GASTROOESOPHAGEAL REFLUX DISEASE
     Route: 048
     Dates: start: 20010815
  33. AVANDIA [Concomitant]
     Dosage: 4 MG - 8 MG
     Route: 048
     Dates: start: 20011022
  34. GLIPIZIDE [Concomitant]
     Dosage: 5 MG - 10 MG
     Route: 048
     Dates: start: 20011128
  35. BEXTRA [Concomitant]
     Route: 048
     Dates: start: 20020803
  36. REBETOL [Concomitant]
     Route: 048
     Dates: start: 20010820
  37. STARLIX [Concomitant]
     Route: 048
     Dates: start: 20021118
  38. OXYCODONE [Concomitant]
     Dosage: 5 MG - 20 MG
     Route: 048
     Dates: start: 20000927
  39. ZETIA [Concomitant]
     Indication: HYPERCHOLESTEROLAEMIA
     Route: 048
     Dates: start: 20060420
  40. ZETIA [Concomitant]
     Route: 048
     Dates: start: 20060606
  41. NEURONTIN [Concomitant]
     Route: 048
     Dates: start: 20060606
  42. DETROL [Concomitant]
     Indication: HYPERTONIC BLADDER
     Dosage: 2 MG - 25 MG
     Route: 048
     Dates: start: 20040302
  43. REMERON [Concomitant]
     Indication: DEPRESSION
     Dosage: 15 MG - 45 MG
     Route: 048
     Dates: start: 20040330
  44. REMERON [Concomitant]
     Route: 048
     Dates: start: 20060420
  45. XIFAXAN [Concomitant]
     Route: 048
     Dates: start: 20070219
  46. ATIVAN [Concomitant]
     Route: 048
     Dates: start: 20070124
  47. LEVSIN [Concomitant]
     Dosage: 0.125 MG, ONE BEFORE MEALS, THREE TIMES A DAY AND AT BEDTIME
     Route: 048
     Dates: start: 20061222
  48. CORGARD [Concomitant]
     Route: 048
     Dates: start: 20070306
  49. LYRICA [Concomitant]
     Route: 048
     Dates: start: 20070801
  50. INSULIN [Concomitant]
     Route: 058
     Dates: start: 20070801
  51. LANTUS [Concomitant]
     Dosage: 22-30 IU
     Route: 058
     Dates: start: 20040330
  52. AMARYL [Concomitant]
     Route: 048
  53. PROMETHAZINE [Concomitant]
     Route: 048
  54. CELEXA [Concomitant]
     Route: 048
     Dates: start: 20071122
  55. ULTRAM [Concomitant]
     Route: 048
  56. ALTACE [Concomitant]
     Route: 048
     Dates: start: 20040330
  57. AMBIEN [Concomitant]
     Route: 048
     Dates: start: 20040330
  58. BACLOFEN [Concomitant]
     Route: 048
     Dates: start: 20040330
  59. LACTULOSE [Concomitant]
     Indication: CONSTIPATION
     Dosage: 2 TABLESPOONS THREE TIMES A DAY
     Route: 048
     Dates: start: 20040716
  60. LACTULOSE [Concomitant]
     Dosage: 10 GM PO OF 6
     Route: 048
     Dates: start: 20060420

REACTIONS (7)
  - DIABETES MELLITUS [None]
  - DIABETES MELLITUS INADEQUATE CONTROL [None]
  - DIABETIC NEUROPATHY [None]
  - HYPERGLYCAEMIC HYPEROSMOLAR NONKETOTIC SYNDROME [None]
  - INSULIN-REQUIRING TYPE 2 DIABETES MELLITUS [None]
  - TYPE 1 DIABETES MELLITUS [None]
  - TYPE 2 DIABETES MELLITUS [None]
